FAERS Safety Report 9678643 (Version 2)
Quarter: 2013Q4

REPORT INFORMATION
  Report Type: Spontaneous
  Country: US (occurrence: US)
  Receive Date: 20131108
  Receipt Date: 20131203
  Transmission Date: 20140711
  Serious: Yes (Death)
  Sender: FDA-Public Use
  Company Number: US-ACTELION-A-NJ2013-90767

PATIENT
  Age: 67 Year
  Sex: Male

DRUGS (3)
  1. VELETRI [Suspect]
     Indication: PULMONARY ARTERIAL HYPERTENSION
     Dosage: 24.8 NG/KG, PER MIN
     Route: 042
     Dates: start: 20101111
  2. SILDENAFIL [Concomitant]
  3. COUMADIN [Concomitant]

REACTIONS (1)
  - Gastrointestinal haemorrhage [Fatal]
